FAERS Safety Report 16617476 (Version 1)
Quarter: 2019Q3

REPORT INFORMATION
  Report Type: Report from Study
  Country: US (occurrence: US)
  Receive Date: 20190723
  Receipt Date: 20190723
  Transmission Date: 20191004
  Serious: Yes (Hospitalization, Other)
  Sender: FDA-Public Use
  Company Number: US-BRISTOL-MYERS SQUIBB COMPANY-BMS-2019-070436

PATIENT
  Age: 46 Year
  Sex: Female
  Weight: 56.1 kg

DRUGS (2)
  1. NIVOLUMAB [Suspect]
     Active Substance: NIVOLUMAB
     Indication: NON-SMALL CELL LUNG CANCER METASTATIC
     Dosage: 3 MILLIGRAM/KILOGRAM, Q2WK
     Route: 042
     Dates: start: 20190116, end: 20190410
  2. IPILIMUMAB [Suspect]
     Active Substance: IPILIMUMAB
     Indication: NON-SMALL CELL LUNG CANCER METASTATIC
     Dosage: 1 MILLIGRAM/KILOGRAM, Q6WK
     Route: 042
     Dates: start: 20190227, end: 20190410

REACTIONS (4)
  - Pericardial effusion [Recovered/Resolved]
  - Catheter site infection [Unknown]
  - Pneumothorax [Unknown]
  - Malignant pleural effusion [Unknown]

NARRATIVE: CASE EVENT DATE: 20190514
